FAERS Safety Report 17518839 (Version 2)
Quarter: 2020Q3

REPORT INFORMATION
  Report Type: Report from Study
  Country: MX (occurrence: MX)
  Receive Date: 20200309
  Receipt Date: 20200323
  Transmission Date: 20201105
  Serious: Yes (Other)
  Sender: FDA-Public Use
  Company Number: NVSC2020MX064756

PATIENT
  Sex: Female
  Weight: 53 kg

DRUGS (4)
  1. DIOVAN [Suspect]
     Active Substance: VALSARTAN
     Indication: BLOOD PRESSURE INCREASED
     Dosage: 1 DF, QD (STARTED 20 YEARS AGO, STOPPED 18 YEARS AGO
     Route: 048
  2. CO?DIOVAN [Suspect]
     Active Substance: HYDROCHLOROTHIAZIDE\VALSARTAN
     Indication: BLOOD PRESSURE INCREASED
     Dosage: 1 DF, QD APPROXIMATELY 18 YEARS AGO
     Route: 048
  3. SIMBRINZA [Suspect]
     Active Substance: BRIMONIDINE TARTRATE\BRINZOLAMIDE
     Indication: INTRAOCULAR PRESSURE INCREASED
     Dosage: 1 GTT, BID (STARTED 15 DAYS AGO)
     Route: 047
  4. TRAVATAN [Suspect]
     Active Substance: TRAVOPROST
     Indication: PRODUCT USED FOR UNKNOWN INDICATION
     Dosage: 1 GTT, QD (STARTED 3 YEARS AGO)
     Route: 047

REACTIONS (4)
  - Cataract [Recovering/Resolving]
  - Glaucoma [Recovering/Resolving]
  - Hypothyroidism [Unknown]
  - Intraocular pressure increased [Unknown]
